FAERS Safety Report 5324972-6 (Version None)
Quarter: 2007Q2

REPORT INFORMATION
  Report Type: 
  Country: None (occurrence: None)
  Receive Date: 20070510
  Receipt Date: 20070510
  Transmission Date: 20071010
  Serious: Yes (Death, Hospitalization)
  Sender: FDA-Public Use
  Company Number: None

PATIENT
  Age: 59 Year
  Sex: Male

DRUGS (12)
  1. LITHIUM CARBONATE [Suspect]
     Indication: SCHIZOPHRENIA
     Dosage: 150MG DAILY PO
     Route: 048
  2. COMBIVENT [Concomitant]
  3. XOPENEX [Concomitant]
  4. MOMETASONE FUROATE [Concomitant]
  5. ASPIRIN [Concomitant]
  6. KLONOPIN [Concomitant]
  7. METOPROLOL TARTRATE [Concomitant]
  8. TRAZODONE HCL [Concomitant]
  9. RISPERDAL [Concomitant]
  10. KEFLEX [Concomitant]
  11. LASIX [Concomitant]
  12. LISINOPRIL [Concomitant]

REACTIONS (6)
  - ANTIPSYCHOTIC DRUG LEVEL ABOVE THERAPEUTIC [None]
  - BLOOD CREATININE INCREASED [None]
  - DIALYSIS [None]
  - MENTAL STATUS CHANGES [None]
  - REBOUND EFFECT [None]
  - THERAPEUTIC AGENT TOXICITY [None]
